FAERS Safety Report 25578275 (Version 3)
Quarter: 2025Q3

REPORT INFORMATION
  Report Type: Spontaneous
  Country: US (occurrence: US)
  Receive Date: 20250718
  Receipt Date: 20250825
  Transmission Date: 20251020
  Serious: No
  Sender: AMGEN
  Company Number: US-PFIZER INC-202500144035

PATIENT
  Age: 59 Year
  Sex: Male

DRUGS (1)
  1. ENBREL [Suspect]
     Active Substance: ETANERCEPT
     Indication: Product used for unknown indication
     Route: 065

REACTIONS (3)
  - Dizziness [Unknown]
  - Pruritus [Unknown]
  - Drug hypersensitivity [Unknown]
